FAERS Safety Report 20852529 (Version 1)
Quarter: 2022Q2

REPORT INFORMATION
  Report Type: Spontaneous
  Country: US (occurrence: US)
  Receive Date: 20220520
  Receipt Date: 20220520
  Transmission Date: 20220720
  Serious: Yes (Life-Threatening, Other)
  Sender: FDA-Public Use
  Company Number: US-FLORIDAPHARMA-US-2022FPPLIT00019

PATIENT
  Age: 9 Month
  Sex: Female

DRUGS (8)
  1. LEVETIRACETAM [Suspect]
     Active Substance: LEVETIRACETAM
     Indication: Status epilepticus
     Route: 065
  2. FOSPHENYTOIN [Concomitant]
     Active Substance: FOSPHENYTOIN
     Indication: Status epilepticus
     Route: 065
  3. LORAZEPAM [Concomitant]
     Active Substance: LORAZEPAM
     Indication: Status epilepticus
     Route: 042
  4. DIAZEPAM [Concomitant]
     Active Substance: DIAZEPAM
     Indication: Status epilepticus
     Route: 054
  5. MIDAZOLAM [Concomitant]
     Active Substance: MIDAZOLAM
     Indication: Status epilepticus
     Route: 065
  6. KETAMINE [Concomitant]
     Active Substance: KETAMINE
     Indication: Status epilepticus
     Route: 042
  7. PROPOFOL [Concomitant]
     Active Substance: PROPOFOL
     Indication: Status epilepticus
     Route: 065
  8. CEPHALEXIN [Concomitant]
     Active Substance: CEPHALEXIN
     Indication: Urinary tract infection
     Route: 065

REACTIONS (1)
  - Drug ineffective [Unknown]
